FAERS Safety Report 16184816 (Version 1)
Quarter: 2019Q2

REPORT INFORMATION
  Report Type: Spontaneous
  Country: US (occurrence: US)
  Receive Date: 20190411
  Receipt Date: 20190411
  Transmission Date: 20190711
  Serious: No
  Sender: FDA-Public Use
  Company Number: US-BAUSCH-BL-2018-027975

PATIENT
  Age: 61 Year
  Sex: Female
  Weight: 55.84 kg

DRUGS (3)
  1. OPTIVE [Concomitant]
     Active Substance: CARBOXYMETHYLCELLULOSE SODIUM\GLYCERIN
     Indication: DRY EYE
     Route: 047
  2. ZADITOR [Concomitant]
     Active Substance: KETOTIFEN FUMARATE
     Indication: DRY EYE
     Route: 047
  3. ALREX [Suspect]
     Active Substance: LOTEPREDNOL ETABONATE
     Indication: DRY EYE
     Dosage: BOTH EYES (MOST OF THE TIME)?AS DIRECTED
     Route: 047
     Dates: start: 20180928

REACTIONS (2)
  - Eye irritation [Recovering/Resolving]
  - Wrong technique in product usage process [Unknown]

NARRATIVE: CASE EVENT DATE: 2018
